FAERS Safety Report 18497140 (Version 3)
Quarter: 2021Q3

REPORT INFORMATION
  Report Type: Report from Study
  Country: US (occurrence: US)
  Receive Date: 20201112
  Receipt Date: 20210901
  Transmission Date: 20211014
  Serious: Yes (Death)
  Sender: FDA-Public Use
  Company Number: NVSC2020US300872

PATIENT
  Sex: Female

DRUGS (1)
  1. AFINITOR [Suspect]
     Active Substance: EVEROLIMUS
     Indication: CARCINOID TUMOUR PULMONARY
     Dosage: 10 MG, QD
     Route: 048

REACTIONS (8)
  - Eye swelling [Unknown]
  - Product use in unapproved indication [Unknown]
  - Alopecia [Unknown]
  - Eye infection [Unknown]
  - Peripheral swelling [Unknown]
  - Chills [Unknown]
  - Fatigue [Unknown]
  - Death [Fatal]
